FAERS Safety Report 20360391 (Version 2)
Quarter: 2022Q2

REPORT INFORMATION
  Report Type: Other
  Country: ZW (occurrence: ZW)
  Receive Date: 20220121
  Receipt Date: 20220401
  Transmission Date: 20220720
  Serious: Yes (Other)
  Sender: FDA-Public Use
  Company Number: ZW-MACLEODS PHARMACEUTICALS US LTD-MAC2022034117

PATIENT

DRUGS (4)
  1. LAMIVUDINE\ZIDOVUDINE [Suspect]
     Active Substance: LAMIVUDINE\ZIDOVUDINE
     Indication: HIV infection
     Dosage: UNK 1 COURSE, EXPOSURE DURING 1ST TRIMESTER
     Route: 065
     Dates: start: 20210616
  2. DARUNAVIR [Suspect]
     Active Substance: DARUNAVIR
     Indication: HIV infection
     Dosage: UNK 1 COURSE, EXPOSURE  DURING 1ST TRIMESTER
     Route: 065
     Dates: start: 20210616
  3. TIVICAY [Suspect]
     Active Substance: DOLUTEGRAVIR SODIUM
     Indication: HIV infection
     Dosage: UNK; 1 COURSE, EXPOSURE DURING 1ST TRIMESTER
     Route: 065
     Dates: start: 20210519, end: 20210615
  4. RITONAVIR [Suspect]
     Active Substance: RITONAVIR
     Indication: HIV infection
     Dosage: UNK 1 COURSE, EXPOSURE DURING 1ST TRIMESTER
     Route: 065
     Dates: start: 20210616

REACTIONS (2)
  - Abortion spontaneous [Unknown]
  - Maternal exposure during pregnancy [Unknown]

NARRATIVE: CASE EVENT DATE: 20210915
